FAERS Safety Report 9689135 (Version 1)
Quarter: 2013Q4

REPORT INFORMATION
  Report Type: Spontaneous
  Country: US (occurrence: None)
  Receive Date: 20131113
  Receipt Date: 20131113
  Transmission Date: 20140711
  Serious: Yes (Other)
  Sender: FDA-Public Use
  Company Number: KAD201311-001499

PATIENT
  Age: 46 Year
  Sex: Female

DRUGS (2)
  1. RIBAVIRIN [Suspect]
     Indication: HEPATITIS C
  2. PEGYLATED INTERFERON [Suspect]
     Indication: HEPATITIS C

REACTIONS (4)
  - Leukopenia [None]
  - Pneumonia [None]
  - Porphyria non-acute [None]
  - Disease recurrence [None]
